FAERS Safety Report 10569995 (Version 2)
Quarter: 2014Q4

REPORT INFORMATION
  Report Type: Spontaneous
  Country: US (occurrence: US)
  Receive Date: 20141107
  Receipt Date: 20141222
  Transmission Date: 20150529
  Serious: Yes (Hospitalization)
  Sender: FDA-Public Use
  Company Number: US-BIOGENIDEC-2014BI112292

PATIENT
  Age: 37 Year
  Sex: Female

DRUGS (4)
  1. TRAZODONE HYDROCHLORIDE. [Concomitant]
     Active Substance: TRAZODONE HYDROCHLORIDE
  2. MOBIC [Concomitant]
     Active Substance: MELOXICAM
  3. CYMBALTA [Concomitant]
     Active Substance: DULOXETINE HYDROCHLORIDE
  4. TECFIDERA [Suspect]
     Active Substance: DIMETHYL FUMARATE
     Indication: MULTIPLE SCLEROSIS
     Route: 048

REACTIONS (1)
  - Road traffic accident [Recovered/Resolved]

NARRATIVE: CASE EVENT DATE: 20141021
